FAERS Safety Report 6203168-X (Version None)
Quarter: 2009Q2

REPORT INFORMATION
  Report Type: 
  Country: None (occurrence: None)
  Receive Date: 20090526
  Receipt Date: 20090526
  Transmission Date: 20091009
  Serious: Yes (Hospitalization)
  Sender: FDA-Public Use
  Company Number: None

PATIENT
  Age: 47 Year
  Sex: Male
  Weight: 108 kg

DRUGS (5)
  1. AVASTIN [Suspect]
     Indication: OESOPHAGEAL CARCINOMA
     Dosage: 15MG/KG Q 3 WEEKS IV
     Route: 042
     Dates: start: 20080129, end: 20090217
  2. CAPECITABINE 544/M2 PO QD X 14 DAYS [Suspect]
     Dosage: 544/M2 QD X 14 DAYS PO
     Route: 048
  3. DIOVAN [Concomitant]
  4. HYDROCHLOROTHIAZIDE [Concomitant]
  5. METFORMIN HYDROCHLORIDE [Concomitant]

REACTIONS (6)
  - BACTERIAL INFECTION [None]
  - BRAIN OEDEMA [None]
  - CENTRAL NERVOUS SYSTEM INFECTION [None]
  - DURAL FISTULA [None]
  - ENCEPHALOMALACIA [None]
  - HEMIPARESIS [None]
